FAERS Safety Report 23340551 (Version 1)
Quarter: 2023Q4

REPORT INFORMATION
  Report Type: Spontaneous
  Country: US (occurrence: US)
  Receive Date: 20231227
  Receipt Date: 20231227
  Transmission Date: 20240110
  Serious: No
  Sender: FDA-Public Use
  Company Number: US-BRISTOL-MYERS SQUIBB COMPANY-2023-185484

PATIENT
  Age: 75 Year
  Sex: Female
  Weight: 80.29 kg

DRUGS (1)
  1. REVLIMID [Suspect]
     Active Substance: LENALIDOMIDE
     Indication: Product used for unknown indication
     Dosage: FREQUENCY-3WKSON,1OFF
     Route: 048

REACTIONS (4)
  - Vomiting [Unknown]
  - Diarrhoea [Unknown]
  - Photopsia [Unknown]
  - Feeling abnormal [Unknown]
